FAERS Safety Report 13821699 (Version 1)
Quarter: 2017Q3

REPORT INFORMATION
  Report Type: Spontaneous
  Country: US (occurrence: US)
  Receive Date: 20170801
  Receipt Date: 20170801
  Transmission Date: 20171127
  Serious: No
  Sender: FDA-Public Use
  Company Number: US-009507513-1707USA011229

PATIENT
  Age: 84 Year
  Sex: Male

DRUGS (1)
  1. BELSOMRA [Suspect]
     Active Substance: SUVOREXANT
     Indication: INSOMNIA
     Dosage: ONE HALF OF A 15 MG TABLET
     Route: 048

REACTIONS (4)
  - Nervousness [Recovered/Resolved]
  - Wrong technique in product usage process [Unknown]
  - Middle insomnia [Recovered/Resolved]
  - Feeling jittery [Recovered/Resolved]
